FAERS Safety Report 5851590-3 (Version None)
Quarter: 2008Q3

REPORT INFORMATION
  Report Type: 
  Country: None (occurrence: None)
  Receive Date: 20080820
  Receipt Date: 20051004
  Transmission Date: 20090109
  Serious: Yes (Death)
  Sender: FDA-Public Use
  Company Number: US-SANOFI-SYNTHELABO-F01200502049

PATIENT
  Sex: Female
  Weight: 75 kg

DRUGS (12)
  1. EMEND [Concomitant]
  2. ZOSYN [Concomitant]
     Indication: SEPSIS
     Dates: start: 20051002, end: 20051003
  3. GENTAMYCIN SULFATE [Concomitant]
     Indication: SEPSIS
     Dates: start: 20051002, end: 20051003
  4. BENICAR [Concomitant]
  5. TOFRANIL [Concomitant]
  6. COMPAZINE [Concomitant]
  7. HYDROCHLOROTHIAZIDE [Concomitant]
  8. CA/MG OR PLACEBO [Suspect]
     Route: 042
     Dates: start: 20050921, end: 20050921
  9. BEVACIZUMAB [Suspect]
     Indication: COLON CANCER METASTATIC
     Route: 042
     Dates: start: 20050921, end: 20050921
  10. LEUCOVORIN CALCIUM [Suspect]
     Indication: COLON CANCER METASTATIC
     Route: 042
     Dates: start: 20050921, end: 20050921
  11. FLUOROURACIL [Suspect]
     Indication: COLON CANCER METASTATIC
     Dosage: 2400 MG/M2 IV ON DAY 1 AND DAY 2, Q2W
     Route: 042
     Dates: start: 20050921, end: 20050923
  12. OXALIPLATIN [Suspect]
     Indication: COLORECTAL CANCER METASTATIC
     Route: 042
     Dates: start: 20050921, end: 20050921

REACTIONS (4)
  - ABDOMINAL PAIN [None]
  - NEUTROPENIC SEPSIS [None]
  - SEDATION [None]
  - SINUS TACHYCARDIA [None]
